FAERS Safety Report 21858490 (Version 1)
Quarter: 2023Q1

REPORT INFORMATION
  Report Type: Spontaneous
  Country: CN (occurrence: CN)
  Receive Date: 20230113
  Receipt Date: 20230113
  Transmission Date: 20230418
  Serious: Yes (Other)
  Sender: FDA-Public Use
  Company Number: CN-PADAGIS-2023PAD00003

PATIENT

DRUGS (3)
  1. CETIRIZINE HYDROCHLORIDE [Suspect]
     Active Substance: CETIRIZINE HYDROCHLORIDE
     Indication: Cutaneous vasculitis
     Dosage: UNK
     Route: 065
  2. PREDNISOLONE ACETATE [Suspect]
     Active Substance: PREDNISOLONE ACETATE
     Indication: Cutaneous vasculitis
     Dosage: UNK
     Route: 065
  3. LORATADINE [Suspect]
     Active Substance: LORATADINE
     Indication: Cutaneous vasculitis
     Dosage: TABLET
     Route: 065

REACTIONS (1)
  - Drug ineffective for unapproved indication [Unknown]
